FAERS Safety Report 8432928-X (Version None)
Quarter: 2012Q2

REPORT INFORMATION
  Report Type: 
  Country: None (occurrence: None)
  Receive Date: 20120613
  Receipt Date: 20120605
  Transmission Date: 20120825
  Serious: Yes (Other)
  Sender: FDA-Public Use
  Company Number: JP-ROCHE-1061064

PATIENT
  Age: 64 Year
  Sex: Female

DRUGS (5)
  1. RADICUT [Concomitant]
     Route: 041
     Dates: start: 20110922, end: 20111005
  2. HEPARIN SODIUM [Concomitant]
     Route: 041
     Dates: start: 20110928, end: 20111011
  3. WARFARIN POTASSIUM [Concomitant]
     Route: 048
     Dates: start: 20111004, end: 20111017
  4. ALTEPLASE [Suspect]
     Indication: EMBOLIC STROKE
     Route: 042
     Dates: start: 20110922, end: 20110922
  5. GLYCEOL [Concomitant]
     Route: 041
     Dates: start: 20110922, end: 20111001

REACTIONS (1)
  - HAEMORRHAGIC CEREBRAL INFARCTION [None]
